FAERS Safety Report 15198603 (Version 2)
Quarter: 2018Q3

REPORT INFORMATION
  Report Type: Spontaneous
  Country: US (occurrence: US)
  Receive Date: 20180725
  Receipt Date: 20180917
  Transmission Date: 20181010
  Serious: No
  Sender: FDA-Public Use
  Company Number: US-VIFOR (INTERNATIONAL) INC.-VIT-2016-06731

PATIENT
  Age: 76 Year
  Sex: Male
  Weight: 79.45 kg

DRUGS (25)
  1. PRAVASTATIN SODIUM. [Concomitant]
     Active Substance: PRAVASTATIN SODIUM
  2. VELTASSA [Suspect]
     Active Substance: PATIROMER
     Indication: HYPERKALAEMIA
     Route: 048
     Dates: start: 201602, end: 201603
  3. ASPIRIN 81 [Concomitant]
     Active Substance: ASPIRIN
  4. MULTIVITAMIN [Concomitant]
     Active Substance: VITAMINS
  5. PLAVIX [Concomitant]
     Active Substance: CLOPIDOGREL BISULFATE
  6. VELTASSA [Suspect]
     Active Substance: PATIROMER
     Route: 048
     Dates: start: 201604
  7. OMEPRAZOLE. [Concomitant]
     Active Substance: OMEPRAZOLE
  8. VALSARTAN. [Concomitant]
     Active Substance: VALSARTAN
     Indication: RENAL DISORDER
  9. CALCIUM CARBONATE. [Concomitant]
     Active Substance: CALCIUM CARBONATE
  10. METOPROLOL SUCCINATE. [Concomitant]
     Active Substance: METOPROLOL SUCCINATE
  11. PEPCID AC MAXIMUM STRENGTH [Concomitant]
     Active Substance: FAMOTIDINE
  12. VELTASSA [Suspect]
     Active Substance: PATIROMER
     Route: 048
     Dates: start: 201603, end: 2016
  13. ALLOPURINOL. [Concomitant]
     Active Substance: ALLOPURINOL
  14. FISH OIL [Concomitant]
     Active Substance: FISH OIL
  15. VELTASSA [Suspect]
     Active Substance: PATIROMER
     Route: 048
     Dates: start: 20160324
  16. LASIX [Concomitant]
     Active Substance: FUROSEMIDE
  17. AMLODIPINE BESYLATE. [Concomitant]
     Active Substance: AMLODIPINE BESYLATE
  18. COENZYME Q10 [Concomitant]
     Active Substance: UBIDECARENONE
  19. TYLENOL CHEST CONGESTION [Concomitant]
  20. VALSARTAN. [Concomitant]
     Active Substance: VALSARTAN
     Indication: HYPERTENSION
  21. VITAMIN D [Concomitant]
     Active Substance: CHOLECALCIFEROL
  22. TYLENOL [Concomitant]
     Active Substance: ACETAMINOPHEN
  23. ATORVASTATIN [Concomitant]
     Active Substance: ATORVASTATIN
  24. CRESTOR [Concomitant]
     Active Substance: ROSUVASTATIN CALCIUM
  25. PROTONIX [Concomitant]
     Active Substance: PANTOPRAZOLE SODIUM

REACTIONS (3)
  - Constipation [Recovered/Resolved]
  - Off label use [Unknown]
  - Muscle spasms [Recovering/Resolving]

NARRATIVE: CASE EVENT DATE: 201603
